FAERS Safety Report 20127550 (Version 1)
Quarter: 2021Q4

REPORT INFORMATION
  Report Type: Spontaneous
  Country: GR (occurrence: GR)
  Receive Date: 20211129
  Receipt Date: 20211129
  Transmission Date: 20220303
  Serious: Yes (Hospitalization, Other)
  Sender: FDA-Public Use
  Company Number: GR-SA-2021SA316396

PATIENT
  Age: 67 Year

DRUGS (1)
  1. IMATINIB [Suspect]
     Active Substance: IMATINIB
     Indication: Gastrointestinal stromal tumour
     Dosage: UNK

REACTIONS (3)
  - Gastrointestinal stromal tumour [Unknown]
  - Metastases to lung [Unknown]
  - Disease progression [Unknown]
